FAERS Safety Report 5205214-9 (Version None)
Quarter: 2007Q1

REPORT INFORMATION
  Report Type: 
  Country: None (occurrence: None)
  Receive Date: 20070110
  Receipt Date: 20061229
  Transmission Date: 20070707
  Serious: Yes (Disabling, Other)
  Sender: FDA-Public Use
  Company Number: GB-PFIZER INC-2007000467

PATIENT
  Age: 65 Year
  Sex: Female
  Weight: 64 kg

DRUGS (7)
  1. EXEMESTANE [Suspect]
     Indication: BREAST CANCER
     Route: 048
     Dates: start: 20051205, end: 20061120
  2. ALENDRONIC ACID [Concomitant]
  3. AMITRIPTYLINE HCL [Concomitant]
  4. ARTHROTEC [Concomitant]
  5. DIHYDROCODEINE BITARTRATE INJ [Concomitant]
  6. GABAPENTIN [Concomitant]
  7. ZOPICLONE [Concomitant]

REACTIONS (7)
  - ARTHRALGIA [None]
  - DECREASED APPETITE [None]
  - DEPRESSION [None]
  - HOT FLUSH [None]
  - MYALGIA [None]
  - NAUSEA [None]
  - PARAESTHESIA [None]
